FAERS Safety Report 6961653-7 (Version None)
Quarter: 2010Q3

REPORT INFORMATION
  Report Type: 
  Country: None (occurrence: None)
  Receive Date: 20100901
  Receipt Date: 20100823
  Transmission Date: 20110219
  Serious: Yes (Disabling, Other)
  Sender: FDA-Public Use
  Company Number: CHPA2010PT13480

PATIENT
  Sex: Male
  Weight: 80 kg

DRUGS (1)
  1. LAMISIL CREAM [Suspect]
     Indication: TINEA PEDIS
     Dosage: ^1 UNIT DOSE^
     Route: 061
     Dates: start: 20100616, end: 20100618

REACTIONS (6)
  - DERMATITIS BULLOUS [None]
  - ERYTHEMA [None]
  - SKIN EXFOLIATION [None]
  - SKIN REACTION [None]
  - WALKING DISABILITY [None]
  - WOUND INFECTION [None]
